FAERS Safety Report 9257784 (Version 1)
Quarter: 2013Q2

REPORT INFORMATION
  Report Type: Spontaneous
  Country: FR (occurrence: FR)
  Receive Date: 20130426
  Receipt Date: 20130426
  Transmission Date: 20140414
  Serious: Yes (Death)
  Sender: FDA-Public Use
  Company Number: FR-SANOFI-AVENTIS-2013SA039220

PATIENT
  Age: 76 Year
  Sex: Male

DRUGS (7)
  1. LOVENOX [Suspect]
     Indication: THROMBOSIS PROPHYLAXIS
     Route: 058
     Dates: start: 20130213, end: 20130221
  2. XARELTO [Suspect]
     Indication: ATRIAL FIBRILLATION
     Route: 048
     Dates: start: 20130222, end: 20130225
  3. PRAVASTATINE [Concomitant]
  4. PREVISCAN [Concomitant]
     Dates: end: 20130208
  5. NASACORT [Concomitant]
  6. MONO-TILDIEM [Concomitant]
  7. ALLOPURINOL [Concomitant]

REACTIONS (2)
  - Ischaemic stroke [Fatal]
  - Drug ineffective [Fatal]
